FAERS Safety Report 11202474 (Version 1)
Quarter: 2015Q2

REPORT INFORMATION
  Report Type: Spontaneous
  Country: US (occurrence: None)
  Receive Date: 20150617
  Receipt Date: 20150617
  Transmission Date: 20150821
  Serious: No
  Sender: FDA-Public Use
  Company Number: None

PATIENT
  Age: 67 Year
  Sex: Male
  Weight: 81.9 kg

DRUGS (2)
  1. TELAPREVIR [Suspect]
     Active Substance: TELAPREVIR
     Indication: HEPATITIS C
     Dosage: MG, PO
     Route: 048
     Dates: start: 20111019, end: 20111227
  2. RIBAVIRIN. [Suspect]
     Active Substance: RIBAVIRIN
     Indication: HEPATITIS C
     Dosage: MG, BID, PO
     Route: 048
     Dates: start: 20111019

REACTIONS (1)
  - Anaemia [None]

NARRATIVE: CASE EVENT DATE: 20111115
